FAERS Safety Report 5612484-1 (Version None)
Quarter: 2008Q1

REPORT INFORMATION
  Report Type: 
  Country: None (occurrence: None)
  Receive Date: 20080204
  Receipt Date: 20080123
  Transmission Date: 20080703
  Serious: Yes (Hospitalization)
  Sender: FDA-Public Use
  Company Number: GB-WYE-G00933008

PATIENT
  Age: 7 Year
  Sex: Female

DRUGS (2)
  1. IBUPROFEN [Suspect]
     Indication: ABDOMINAL PAIN
     Dosage: 150MG, FREQUENCY UNKNOWN
  2. DICLOFENAC [Suspect]
     Indication: ANALGESIA
     Dosage: 25 MG EVERY 1 TOT
     Route: 054

REACTIONS (4)
  - ANURIA [None]
  - HYPERTENSION [None]
  - RENAL FAILURE ACUTE [None]
  - RENAL TUBULAR NECROSIS [None]
